FAERS Safety Report 4342099-7 (Version None)
Quarter: 2004Q1

REPORT INFORMATION
  Report Type: 
  Country: None (occurrence: None)
  Receive Date: 20040329
  Receipt Date: 20031223
  Transmission Date: 20041129
  Serious: No
  Sender: FDA-Public Use
  Company Number: 03P-163-0245547-00

PATIENT
  Age: 79 Year
  Sex: Female
  Weight: 49.8957 kg

DRUGS (6)
  1. HUMIRA [Suspect]
     Indication: RHEUMATOID ARTHRITIS
     Dosage: 40 MG, 1 IN 2 WK, SUBCUTANEOUS
     Route: 058
     Dates: start: 20031204
  2. IRBESARTAN [Concomitant]
  3. PREDNISONE [Concomitant]
  4. BABY [Concomitant]
  5. ATENOLOL [Concomitant]
  6. FOLIC ACID [Concomitant]

REACTIONS (3)
  - DYSPEPSIA [None]
  - ERYTHEMA [None]
  - SKIN DISCOMFORT [None]
